FAERS Safety Report 21616698 (Version 1)
Quarter: 2022Q4

REPORT INFORMATION
  Report Type: Spontaneous
  Country: US (occurrence: US)
  Receive Date: 20221118
  Receipt Date: 20221118
  Transmission Date: 20230113
  Serious: No
  Sender: FDA-Public Use
  Company Number: US-SA-SAC20221115001937

PATIENT
  Age: 56 Year
  Sex: Female

DRUGS (1)
  1. DUPIXENT [Suspect]
     Active Substance: DUPILUMAB
     Indication: Dermatitis atopic
     Dosage: 300 MG, QOW
     Route: 058
     Dates: start: 201707

REACTIONS (6)
  - Eyelid margin crusting [Unknown]
  - Skin erosion [Unknown]
  - Injury [Unknown]
  - Blood iron abnormal [Unknown]
  - Eye swelling [Unknown]
  - Dermatitis atopic [Unknown]
